FAERS Safety Report 20407509 (Version 1)
Quarter: 2022Q1

REPORT INFORMATION
  Report Type: Report from Study
  Country: CO (occurrence: CO)
  Receive Date: 20220131
  Receipt Date: 20220131
  Transmission Date: 20220423
  Serious: Yes (Hospitalization)
  Sender: FDA-Public Use
  Company Number: CO-UCBSA-2022003063

PATIENT
  Age: 83 Year
  Sex: Male

DRUGS (2)
  1. CERTOLIZUMAB PEGOL [Suspect]
     Active Substance: CERTOLIZUMAB PEGOL
     Indication: Rheumatoid arthritis
     Dosage: 400 MILLIGRAM, EV 4 WEEKS
     Route: 058
     Dates: start: 20190816, end: 20211212
  2. NITROFURANTOIN [Concomitant]
     Active Substance: NITROFURANTOIN
     Indication: Infection
     Dosage: 100 MILLIGRAM
     Route: 048

REACTIONS (3)
  - Sepsis [Recovering/Resolving]
  - Enteritis infectious [Recovering/Resolving]
  - Urinary tract infection [Recovering/Resolving]

NARRATIVE: CASE EVENT DATE: 20211020
